FAERS Safety Report 25214718 (Version 1)
Quarter: 2025Q2

REPORT INFORMATION
  Report Type: Spontaneous
  Country: US (occurrence: None)
  Receive Date: 20250417
  Receipt Date: 20250417
  Transmission Date: 20250716
  Serious: Yes (Hospitalization)
  Sender: FDA-CTU
  Company Number: None

PATIENT
  Age: 58 Year
  Sex: Male
  Weight: 107 kg

DRUGS (1)
  1. SEMAGLUTIDE [Suspect]
     Active Substance: SEMAGLUTIDE
     Indication: Diabetes mellitus
     Route: 058

REACTIONS (8)
  - Abdominal pain [None]
  - Diarrhoea [None]
  - Malaise [None]
  - Vomiting [None]
  - Abdominal distension [None]
  - Nausea [None]
  - Fatigue [None]
  - Hypophagia [None]

NARRATIVE: CASE EVENT DATE: 20241012
